FAERS Safety Report 9260183 (Version 2)
Quarter: 2013Q2

REPORT INFORMATION
  Report Type: Spontaneous
  Country: US (occurrence: US)
  Receive Date: 20130429
  Receipt Date: 20130524
  Transmission Date: 20140414
  Serious: No
  Sender: FDA-Public Use
  Company Number: US-PFIZER INC-2013131947

PATIENT
  Sex: Female

DRUGS (2)
  1. LYRICA [Suspect]
     Indication: NEURALGIA
     Dosage: UNK
     Dates: start: 2005
  2. IBUPROFEN [Concomitant]
     Indication: PAIN
     Dosage: UNK

REACTIONS (2)
  - Fibromyalgia [Unknown]
  - Pain [Unknown]
